FAERS Safety Report 5200166-X (Version None)
Quarter: 2007Q1

REPORT INFORMATION
  Report Type: 
  Country: None (occurrence: None)
  Receive Date: 20070103
  Receipt Date: 20061221
  Transmission Date: 20070707
  Serious: Yes (Death, Hospitalization)
  Sender: FDA-Public Use
  Company Number: 2006BH015222

PATIENT
  Age: 85 Year
  Sex: Male
  Weight: 88.4514 kg

DRUGS (10)
  1. ATIVAN [Suspect]
     Indication: DRUG USE FOR UNKNOWN INDICATION
     Dosage: 1 MG; ONCE; IV
     Route: 030
     Dates: start: 20060718, end: 20060718
  2. ATIVAN [Suspect]
     Indication: DRUG USE FOR UNKNOWN INDICATION
     Dosage: 1 MG; ONCE; PO
     Route: 048
     Dates: start: 20060718, end: 20060718
  3. LASIX [Concomitant]
  4. PLAVIX [Concomitant]
  5. LOPRESSOR [Concomitant]
  6. ASPIRIN [Concomitant]
  7. SIMVASTATIN [Concomitant]
  8. DONEPEZIL HCL [Concomitant]
  9. PAXIL [Concomitant]
  10. IELG [Concomitant]

REACTIONS (6)
  - ABASIA [None]
  - CONFUSIONAL STATE [None]
  - INCONTINENCE [None]
  - OXYGEN SATURATION DECREASED [None]
  - PSYCHOTIC DISORDER [None]
  - TRANSIENT ISCHAEMIC ATTACK [None]
